FAERS Safety Report 10220546 (Version 1)
Quarter: 2014Q2

REPORT INFORMATION
  Report Type: Spontaneous
  Country: US (occurrence: None)
  Receive Date: 20140605
  Receipt Date: 20140605
  Transmission Date: 20141212
  Serious: Yes (Disabling)
  Sender: FDA-Public Use
  Company Number: None

PATIENT
  Age: 61 Year
  Sex: Female
  Weight: 81.65 kg

DRUGS (5)
  1. SIMVASTATIN 40 MG [Suspect]
     Indication: BLOOD CHOLESTEROL INCREASED
     Dosage: APPROXIMAELY 3 YEARS AGO - 4/23/2014, 40 MG, 1 TABLET DAILY, ONCE DAILY, BY MOUTH
     Route: 048
     Dates: end: 20140423
  2. ACEBUTOLOL [Concomitant]
  3. LOSARTAN POTASSIUM [Concomitant]
  4. CENTRUM SILVER [Concomitant]
  5. CALCIUM + VITAMIN D [Concomitant]

REACTIONS (5)
  - Arthralgia [None]
  - Burning sensation [None]
  - Insomnia [None]
  - Muscle injury [None]
  - Asthenia [None]
